FAERS Safety Report 5309740-3 (Version None)
Quarter: 2007Q2

REPORT INFORMATION
  Report Type: 
  Country: None (occurrence: None)
  Receive Date: 20070427
  Receipt Date: 20060504
  Transmission Date: 20071010
  Serious: No
  Sender: FDA-Public Use
  Company Number: US-GLAXOSMITHKLINE-A0596950A

PATIENT
  Age: 58 Year
  Sex: Female

DRUGS (7)
  1. ZOFRAN [Suspect]
     Indication: PROPHYLAXIS OF NAUSEA AND VOMITING
     Dosage: 8MG AS REQUIRED
     Route: 048
     Dates: start: 20060222, end: 20060224
  2. FLUCONAZOLE [Concomitant]
  3. ALPRAZOLAM [Concomitant]
  4. CRESTOR [Concomitant]
  5. UNKNOWN DRUG FOR ANXIETY [Concomitant]
     Indication: ANXIETY
  6. POLYCHEMOTHERAPY [Concomitant]
  7. NEUPOGEN [Concomitant]
     Route: 042

REACTIONS (1)
  - SOMNOLENCE [None]
